FAERS Safety Report 5022514-6 (Version None)
Quarter: 2006Q2

REPORT INFORMATION
  Report Type: 
  Country: None (occurrence: None)
  Receive Date: 20060605
  Receipt Date: 20060517
  Transmission Date: 20061013
  Serious: Yes (Other)
  Sender: FDA-Public Use
  Company Number: 224932

PATIENT
  Age: 54 Year
  Sex: Female

DRUGS (6)
  1. HERCEPTIN [Suspect]
     Indication: BREAST CANCER
     Dosage: 103 MG, 1/WEEK, INTRAVENOUS
     Route: 042
     Dates: start: 20051006
  2. DOCETAXEL (DOCETAXEL) [Suspect]
     Indication: BREAST CANCER
     Dosage: 88 MG, Q3W, INTRAVENOUS
     Route: 042
     Dates: start: 20051006, end: 20060223
  3. DECADRON SRC [Concomitant]
  4. SEROTONE (AZASETRON HYDROCHLORIDE) [Concomitant]
  5. FAMOTIDINE [Concomitant]
  6. MARZULENE-S (DISODIUM GUANYLATE, LEVOGLUTAMIDE) [Concomitant]

REACTIONS (4)
  - DACRYOSTENOSIS ACQUIRED [None]
  - EYELID DISORDER [None]
  - LACRIMATION INCREASED [None]
  - SCAR [None]
